FAERS Safety Report 19201212 (Version 3)
Quarter: 2021Q2

REPORT INFORMATION
  Report Type: Spontaneous
  Country: US (occurrence: US)
  Receive Date: 20210430
  Receipt Date: 20210527
  Transmission Date: 20210717
  Serious: Yes (Death, Hospitalization)
  Sender: FDA-Public Use
  Company Number: US-KARYOPHARM-2021KPT000580

PATIENT

DRUGS (1)
  1. XPOVIO [Suspect]
     Active Substance: SELINEXOR
     Indication: PLASMA CELL MYELOMA
     Dosage: 100 MG, WEEKLY, ORAL
     Route: 048
     Dates: start: 20210401, end: 202104

REACTIONS (5)
  - Confusional state [Unknown]
  - Nightmare [Unknown]
  - Death [Fatal]
  - Acute kidney injury [Unknown]
  - Decreased appetite [Unknown]

NARRATIVE: CASE EVENT DATE: 202104
